FAERS Safety Report 14329490 (Version 3)
Quarter: 2018Q1

REPORT INFORMATION
  Report Type: Spontaneous
  Country: CA (occurrence: CA)
  Receive Date: 20171227
  Receipt Date: 20180205
  Transmission Date: 20180509
  Serious: Yes (Death)
  Sender: FDA-Public Use
  Company Number: CA-MALLINCKRODT-T201705309

PATIENT
  Age: 39 Year
  Sex: Male
  Weight: 80 kg

DRUGS (1)
  1. METHADOSE [Suspect]
     Active Substance: METHADONE HYDROCHLORIDE
     Indication: DRUG WITHDRAWAL MAINTENANCE THERAPY
     Dosage: 10 MG/ML
     Route: 065

REACTIONS (5)
  - Overdose [Fatal]
  - Toxicologic test abnormal [Fatal]
  - Nausea [Unknown]
  - Unresponsive to stimuli [Fatal]
  - Resuscitation [Fatal]
